FAERS Safety Report 16525571 (Version 1)
Quarter: 2019Q3

REPORT INFORMATION
  Report Type: Spontaneous
  Country: US (occurrence: US)
  Receive Date: 20190703
  Receipt Date: 20190703
  Transmission Date: 20191004
  Serious: No
  Sender: FDA-Public Use
  Company Number: US-SA-2019SA172095

PATIENT
  Sex: Male

DRUGS (1)
  1. TOUJEO [Suspect]
     Active Substance: INSULIN GLARGINE
     Dosage: UNK
     Route: 065

REACTIONS (7)
  - Nausea [Unknown]
  - Hyperhidrosis [Unknown]
  - Malaise [Unknown]
  - Vomiting [Unknown]
  - Heart rate increased [Unknown]
  - Dizziness [Unknown]
  - Hypersensitivity [Unknown]
